FAERS Safety Report 14839086 (Version 1)
Quarter: 2018Q2

REPORT INFORMATION
  Report Type: Spontaneous
  Country: US (occurrence: US)
  Receive Date: 20180502
  Receipt Date: 20180502
  Transmission Date: 20180711
  Serious: Yes (Other)
  Sender: FDA-Public Use
  Company Number: US-SA-2018SA120566

PATIENT
  Age: 44 Year
  Sex: Female

DRUGS (2)
  1. ARAVA [Suspect]
     Active Substance: LEFLUNOMIDE
     Route: 048
  2. HUMIRA [Suspect]
     Active Substance: ADALIMUMAB
     Indication: RHEUMATOID ARTHRITIS
     Route: 058

REACTIONS (14)
  - Arthritis [Unknown]
  - Vomiting [Not Recovered/Not Resolved]
  - Back pain [Unknown]
  - Injection site pain [Recovering/Resolving]
  - Feeling abnormal [Unknown]
  - C-reactive protein increased [Recovering/Resolving]
  - Red blood cell sedimentation rate increased [Recovering/Resolving]
  - Sensitivity to weather change [Not Recovered/Not Resolved]
  - Diarrhoea [Not Recovered/Not Resolved]
  - Arthralgia [Not Recovered/Not Resolved]
  - Drug effect decreased [Unknown]
  - Rheumatoid arthritis [Not Recovered/Not Resolved]
  - Back disorder [Unknown]
  - Skin lesion [Recovering/Resolving]
